FAERS Safety Report 13370974 (Version 1)
Quarter: 2017Q1

REPORT INFORMATION
  Report Type: Spontaneous
  Country: FR (occurrence: FR)
  Receive Date: 20170324
  Receipt Date: 20170324
  Transmission Date: 20170429
  Serious: Yes (Other)
  Sender: FDA-Public Use
  Company Number: FR-MUNDIPHARMA DS AND PHARMACOVIGILANCE-GBR-2017-0044273

PATIENT
  Age: 52 Year
  Sex: Female

DRUGS (13)
  1. REMICADE [Suspect]
     Active Substance: INFLIXIMAB
     Indication: SPONDYLOARTHROPATHY
     Dosage: 500 MG TIMES PER CYCLE [500MG EVERY 5 WEEKS]
     Route: 042
     Dates: start: 20161010
  2. METOJECT [Suspect]
     Active Substance: METHOTREXATE SODIUM
     Indication: SPONDYLOARTHROPATHY
     Dosage: 20 MG, WEEKLY [20 MG ONCE A WEEK]
     Route: 058
     Dates: start: 20161229, end: 20170228
  3. LEVOTHYROX [Suspect]
     Active Substance: LEVOTHYROXINE
     Indication: HYPOTHYROIDISM
     Dosage: 125 MCG, DAILY [125 ?G ONCE A DAY]
     Route: 048
  4. OGAST [Suspect]
     Active Substance: LANSOPRAZOLE
     Indication: PRODUCT USED FOR UNKNOWN INDICATION
     Dosage: 60 MG [30 MG TWICE A DAY]
     Route: 048
  5. IRBESARTAN. [Suspect]
     Active Substance: IRBESARTAN
     Indication: HYPERTENSION
     Dosage: 150 MG, DAILY [150 MG ONCE A DAY]
     Route: 048
  6. DESOGESTREL [Suspect]
     Active Substance: DESOGESTREL
     Indication: CHEMICAL CONTRACEPTION
     Dosage: 1 DF, DAILY [1 DF ONCE A DAY]
     Route: 048
     Dates: start: 20151220
  7. REMICADE [Suspect]
     Active Substance: INFLIXIMAB
     Dosage: 400MG EVERY 5 WEEKS
     Route: 042
     Dates: start: 2010
  8. PREVISCAN                          /00261401/ [Suspect]
     Active Substance: PENTOXIFYLLINE
     Indication: PRODUCT USED FOR UNKNOWN INDICATION
     Dosage: 1 DF, DAILY [1 DF ONCE A DAY]
     Route: 048
     Dates: start: 20151220
  9. OXYNORMORO [Suspect]
     Active Substance: OXYCODONE
     Indication: SPONDYLOARTHROPATHY
     Dosage: 10 MG [5 MG TWICE A DAY] [STRENGTH 5 MG]
     Route: 048
  10. OXYCONTIN [Suspect]
     Active Substance: OXYCODONE HYDROCHLORIDE
     Indication: SPONDYLOARTHROPATHY
     Dosage: 60 MG [30 MG TWICE A DAY] [STRENGTH 30 MG]
     Route: 048
  11. DOLIPRANE [Suspect]
     Active Substance: ACETAMINOPHEN
     Indication: SPONDYLOARTHROPATHY
     Dosage: 1 DF, DAILY [1 DF ONCE A DAY]
     Route: 048
     Dates: start: 20151220
  12. METOJECT [Suspect]
     Active Substance: METHOTREXATE SODIUM
     Dosage: 12.5 MG, WEEKLY
     Route: 058
  13. SPECIAFOLDINE [Suspect]
     Active Substance: FOLIC ACID
     Indication: PROPHYLAXIS
     Dosage: 10 MG, WEEKLY [10 MG ONCE A WEEK]
     Route: 048

REACTIONS (1)
  - Thrombocytopenia [Not Recovered/Not Resolved]

NARRATIVE: CASE EVENT DATE: 20161219
